FAERS Safety Report 7107399-6 (Version None)
Quarter: 2010Q4

REPORT INFORMATION
  Report Type: 
  Country: None (occurrence: None)
  Receive Date: 20101111
  Receipt Date: 20101111
  Transmission Date: 20110411
  Serious: Yes (Other)
  Sender: FDA-Public Use
  Company Number: None

PATIENT
  Sex: Male
  Weight: 98.8842 kg

DRUGS (2)
  1. INVEGA [Suspect]
     Indication: DRUG ABUSE
     Dosage: 6 MG ONE PO
     Route: 048
     Dates: start: 20070901, end: 20100401
  2. INVEGA [Suspect]
     Indication: SCHIZOPHRENIA
     Dosage: 6 MG ONE PO
     Route: 048
     Dates: start: 20070901, end: 20100401

REACTIONS (1)
  - LIVER FUNCTION TEST ABNORMAL [None]
